FAERS Safety Report 15575855 (Version 17)
Quarter: 2020Q1

REPORT INFORMATION
  Report Type: Spontaneous
  Country: CA (occurrence: CA)
  Receive Date: 20181101
  Receipt Date: 20200225
  Transmission Date: 20200409
  Serious: Yes (Other)
  Sender: FDA-Public Use
  Company Number: CA-CELLTRION INC.-2018CA022692

PATIENT

DRUGS (32)
  1. INFLECTRA [Suspect]
     Active Substance: INFLIXIMAB-DYYB
     Dosage: 400 MG, EVERY 0, 2, 6 WEEKS, THEN EVERY 8 WEEKS)
     Route: 042
     Dates: start: 20181017, end: 20181017
  2. INFLECTRA [Suspect]
     Active Substance: INFLIXIMAB-DYYB
     Dosage: 400 MG, EVERY 4 WEEKS
     Route: 042
     Dates: start: 20181113
  3. INFLECTRA [Suspect]
     Active Substance: INFLIXIMAB-DYYB
     Dosage: 400 MG,  (EVERY 4 WEEKS)
     Route: 042
     Dates: start: 20190404
  4. BI PEGLYTE [Concomitant]
     Dosage: UNK (AS PER DIRECTIVES)
  5. TEVA SERTRALINE [Concomitant]
     Active Substance: SERTRALINE HYDROCHLORIDE
     Dosage: 150 MG, 1X/DAY
     Route: 048
  6. INFLECTRA [Suspect]
     Active Substance: INFLIXIMAB-DYYB
     Indication: COLITIS ULCERATIVE
     Dosage: 5 MG/KG, EVERY 0, 2, 6 WEEKS THEN EVERY 8 WEEKS
     Route: 042
     Dates: start: 20180907, end: 20180907
  7. INFLECTRA [Suspect]
     Active Substance: INFLIXIMAB-DYYB
     Dosage: 400 MG,  (EVERY 4 WEEKS)
     Route: 042
     Dates: start: 20191015
  8. BENADRYL [Concomitant]
     Active Substance: DIPHENHYDRAMINE HYDROCHLORIDE
     Dosage: 50 MG, UNK
     Route: 042
     Dates: start: 20190521, end: 20190521
  9. HYDROCORTISONE. [Concomitant]
     Active Substance: HYDROCORTISONE
     Dosage: 100 MG, UNK
     Route: 042
     Dates: start: 20190521
  10. D-GEL [Concomitant]
     Dosage: 1000 IU, 1X/DAY (DURING CORTICOTHERAPY)
     Route: 048
  11. INFLECTRA [Suspect]
     Active Substance: INFLIXIMAB-DYYB
     Dosage: 400 MG, EVERY 0, 2, 6 WEEKS, THEN EVERY 8 WEEKS
     Route: 042
     Dates: start: 20180919, end: 20180919
  12. INFLECTRA [Suspect]
     Active Substance: INFLIXIMAB-DYYB
     Dosage: 400 MG, (EVERY 4 WEEKS)
     Route: 042
     Dates: start: 20190304
  13. INFLECTRA [Suspect]
     Active Substance: INFLIXIMAB-DYYB
     Dosage: 400 MG,  (EVERY 4 WEEKS)
     Route: 042
     Dates: start: 20190521
  14. INFLECTRA [Suspect]
     Active Substance: INFLIXIMAB-DYYB
     Dosage: 400 MG,  (EVERY 4 WEEKS)
     Route: 042
     Dates: start: 20191213
  15. TRAZODONE [Concomitant]
     Active Substance: TRAZODONE HYDROCHLORIDE
     Dosage: 100 MG, AS NEEDED
     Route: 048
  16. HYDROCORTISONE. [Concomitant]
     Active Substance: HYDROCORTISONE
     Dosage: 100 UNK, UNK
     Route: 042
     Dates: start: 20191015
  17. JAMP CALCIUM [Concomitant]
     Dosage: 100 MG, 2X/DAY
     Route: 048
  18. RAMIPRIL. [Concomitant]
     Active Substance: RAMIPRIL
     Dosage: UNK
  19. REFRESH TEARS [Concomitant]
     Active Substance: CARBOXYMETHYLCELLULOSE SODIUM
     Dosage: UNK, AS NEEDED (ONE TO TWO DROPS)
     Route: 047
  20. BENADRYL [Concomitant]
     Active Substance: DIPHENHYDRAMINE HYDROCHLORIDE
     Dosage: 50MG, UNK
     Route: 042
     Dates: start: 20190521, end: 20190521
  21. HYDROCORTISONE. [Concomitant]
     Active Substance: HYDROCORTISONE
     Indication: PREMEDICATION
     Dosage: 100 MG, UNK
     Route: 042
     Dates: start: 20180907
  22. HYDROCORTISONE. [Concomitant]
     Active Substance: HYDROCORTISONE
     Dosage: 100 UNK, UNK
     Route: 042
     Dates: start: 20191015
  23. INFLECTRA [Suspect]
     Active Substance: INFLIXIMAB-DYYB
     Dosage: 400 MG,  (EVERY 4 WEEKS)
     Route: 042
     Dates: start: 20190207
  24. INFLECTRA [Suspect]
     Active Substance: INFLIXIMAB-DYYB
     Dosage: 400 MG,  (EVERY 4 WEEKS)
     Route: 042
     Dates: start: 20190723
  25. TEVA PREDNISONE [Concomitant]
     Dosage: 5 MG, UNK
     Route: 048
  26. DIPHENHYDRAMINE. [Concomitant]
     Active Substance: DIPHENHYDRAMINE
     Dosage: 50 MG, UNK
     Route: 042
     Dates: start: 20191015
  27. INFLECTRA [Suspect]
     Active Substance: INFLIXIMAB-DYYB
     Dosage: 400 MG, (EVERY 4 WEEKS)
     Route: 042
     Dates: start: 20190108
  28. INFLECTRA [Suspect]
     Active Substance: INFLIXIMAB-DYYB
     Dosage: 400 MG,  (EVERY 4 WEEKS)
     Route: 042
     Dates: start: 20190619
  29. INFLECTRA [Suspect]
     Active Substance: INFLIXIMAB-DYYB
     Dosage: 400 MG, EVERY 4 WEEKS
     Route: 042
     Dates: start: 20200115
  30. INFLECTRA [Suspect]
     Active Substance: INFLIXIMAB-DYYB
     Dosage: 400 MG, (EVERY 4 WEEKS)
     Route: 042
     Dates: start: 20200210
  31. BENADRYL [Concomitant]
     Active Substance: DIPHENHYDRAMINE HYDROCHLORIDE
     Indication: PREMEDICATION
     Dosage: 25 MG, UNK
     Route: 042
     Dates: start: 20180907
  32. HYDROCORTISONE. [Concomitant]
     Active Substance: HYDROCORTISONE
     Dosage: 100 MG, UNK
     Route: 042
     Dates: start: 20190521, end: 20190521

REACTIONS (20)
  - Carpal tunnel syndrome [Unknown]
  - Sciatic nerve neuropathy [Recovering/Resolving]
  - Abdominal pain [Unknown]
  - Therapeutic product effect incomplete [Unknown]
  - Off label use [Not Recovered/Not Resolved]
  - Blood pressure fluctuation [Unknown]
  - Paraesthesia [Not Recovered/Not Resolved]
  - Pyrexia [Unknown]
  - Dysphagia [Recovering/Resolving]
  - Oxygen saturation abnormal [Unknown]
  - Arthralgia [Not Recovered/Not Resolved]
  - Hypertension [Unknown]
  - Pain in extremity [Not Recovered/Not Resolved]
  - Cough [Recovering/Resolving]
  - Condition aggravated [Unknown]
  - Dry throat [Recovered/Resolved]
  - Oropharyngeal pain [Recovering/Resolving]
  - Throat irritation [Not Recovered/Not Resolved]
  - Intentional product use issue [Not Recovered/Not Resolved]
  - Heart rate irregular [Unknown]

NARRATIVE: CASE EVENT DATE: 20180907
